FAERS Safety Report 9874654 (Version 1)
Quarter: 2014Q1

REPORT INFORMATION
  Report Type: Spontaneous
  Country: BR (occurrence: BR)
  Receive Date: 20140206
  Receipt Date: 20140206
  Transmission Date: 20141002
  Serious: Yes (Hospitalization, Other)
  Sender: FDA-Public Use
  Company Number: PHHY2014BR012468

PATIENT
  Age: 63 Year
  Sex: Female

DRUGS (2)
  1. DIOVAN AMLO FIX [Suspect]
     Indication: HYPERTENSION
     Dosage: 1 DF (VALS 320 MG / AMLO 5 MG), A DAY
     Route: 048
  2. DIOVAN AMLO FIX [Suspect]
     Indication: ARRHYTHMIA

REACTIONS (3)
  - Cerebrovascular accident [Recovering/Resolving]
  - Balance disorder [Recovering/Resolving]
  - Movement disorder [Recovering/Resolving]
